FAERS Safety Report 24651687 (Version 3)
Quarter: 2025Q2

REPORT INFORMATION
  Report Type: Report from Study
  Country: US (occurrence: US)
  Receive Date: 20241122
  Receipt Date: 20250407
  Transmission Date: 20250716
  Serious: Yes (Other)
  Sender: TAKEDA
  Company Number: US-TAKEDA-US201924595

PATIENT
  Sex: Female

DRUGS (2)
  1. HUMAN IMMUNOGLOBULIN G [Suspect]
     Active Substance: HUMAN IMMUNOGLOBULIN G
     Indication: Immunodeficiency common variable
  2. HUMAN IMMUNOGLOBULIN G [Suspect]
     Active Substance: HUMAN IMMUNOGLOBULIN G
     Indication: Primary immunodeficiency syndrome
     Dosage: 20 GRAM, MONTHLY

REACTIONS (14)
  - Cataract [Unknown]
  - Pharyngeal disorder [Unknown]
  - Product supply issue [Unknown]
  - Viral infection [Unknown]
  - Weight decreased [Unknown]
  - Skin papilloma [Unknown]
  - Drug hypersensitivity [Unknown]
  - Sinus disorder [Unknown]
  - Sensitivity to weather change [Unknown]
  - Urinary tract infection [Unknown]
  - Inappropriate schedule of product administration [Unknown]
  - Laryngeal polyp [Unknown]
  - Sinusitis [Recovering/Resolving]
  - Pyrexia [Unknown]
